FAERS Safety Report 7809264-5 (Version None)
Quarter: 2011Q4

REPORT INFORMATION
  Report Type: 
  Country: None (occurrence: None)
  Receive Date: 20111012
  Receipt Date: 20111006
  Transmission Date: 20120403
  Serious: Yes (Death)
  Sender: FDA-Public Use
  Company Number: US-NOVOPROD-333916

PATIENT

DRUGS (1)
  1. VICTOZA [Suspect]
     Indication: TYPE 2 DIABETES MELLITUS
     Dosage: UNKNOWN
     Route: 058
     Dates: start: 20100702, end: 20110124

REACTIONS (6)
  - BLOOD GLUCOSE INCREASED [None]
  - PANCREATIC CARCINOMA [None]
  - BACK PAIN [None]
  - NAUSEA [None]
  - WEIGHT DECREASED [None]
  - ABDOMINAL PAIN [None]
